FAERS Safety Report 24262264 (Version 1)
Quarter: 2024Q3

REPORT INFORMATION
  Report Type: Spontaneous
  Country: ES (occurrence: ES)
  Receive Date: 20240829
  Receipt Date: 20240829
  Transmission Date: 20241017
  Serious: Yes (Hospitalization)
  Sender: RANBAXY
  Company Number: ES-AEMPS-1533482

PATIENT
  Age: 3 Year
  Sex: Male
  Weight: 20 kg

DRUGS (12)
  1. TEMOZOLOMIDE [Suspect]
     Active Substance: TEMOZOLOMIDE
     Indication: Neuroblastoma recurrent
     Dosage: UNK
     Route: 048
     Dates: start: 20240528, end: 20240601
  2. IRINOTECAN [Suspect]
     Active Substance: IRINOTECAN
     Indication: Neuroblastoma recurrent
     Dosage: 37.5 MG C/24 H
     Route: 040
     Dates: start: 20240528, end: 20240601
  3. CEFIXIME [Concomitant]
     Active Substance: CEFIXIME
     Indication: Prophylactic chemotherapy
     Dosage: 160.0 MG C/24 H
     Route: 048
     Dates: start: 20240416
  4. METAMIZOLE SODIUM [Concomitant]
     Active Substance: METAMIZOLE SODIUM
     Indication: Adrenal gland cancer
     Dosage: 250.0 MG W/8 HOURS
     Route: 048
     Dates: start: 20230731
  5. DIFLUCAN [Concomitant]
     Active Substance: FLUCONAZOLE
     Indication: Candida infection
     Dosage: 200.0 MG C/24 H
     Route: 048
     Dates: start: 20240416
  6. ACETAMINOPHEN [Concomitant]
     Active Substance: ACETAMINOPHEN
     Indication: Product used for unknown indication
     Dosage: 200.0 MG DECODE
     Route: 048
     Dates: start: 20240415
  7. SULFAMETHOXAZOLE\TRIMETHOPRIM [Concomitant]
     Active Substance: SULFAMETHOXAZOLE\TRIMETHOPRIM
     Indication: Adrenal gland cancer
     Dosage: 200.0 MG LU,MI,VI
     Route: 048
     Dates: start: 20240110
  8. DIETARY SUPPLEMENT [Concomitant]
     Active Substance: DIETARY SUPPLEMENT
     Indication: Gastroenteritis
     Dosage: 5.0 CUCH COMES
     Route: 048
     Dates: start: 20240411
  9. DINUTUXIMAB [Concomitant]
     Active Substance: DINUTUXIMAB
     Indication: Neuroblastoma recurrent
     Dosage: 10.0 10 MG/M2/DAY/24 H
     Dates: start: 20240528, end: 20240603
  10. MAYGACE [Concomitant]
     Indication: Adrenal gland cancer
     Dosage: 60.0 MG A-DECOCE
     Route: 048
     Dates: start: 20230731
  11. GABAPENTIN [Concomitant]
     Active Substance: GABAPENTIN
     Indication: Adrenal gland cancer
     Dosage: 200.0 MG C/12 H
     Route: 048
     Dates: start: 20240502
  12. VITAMINA D3 KERN PHARMA [Concomitant]
     Indication: Adrenal gland cancer
     Dosage: 600.0 IU OF
     Route: 048
     Dates: start: 20240110

REACTIONS (2)
  - Diarrhoea [Recovering/Resolving]
  - Abdominal pain [Recovered/Resolved]

NARRATIVE: CASE EVENT DATE: 20240602
